FAERS Safety Report 9127296 (Version 1)
Quarter: 2013Q1

REPORT INFORMATION
  Report Type: Spontaneous
  Country: US (occurrence: US)
  Receive Date: 20130228
  Receipt Date: 20130228
  Transmission Date: 20140127
  Serious: No
  Sender: FDA-Public Use
  Company Number: US-GLAXOSMITHKLINE-A0967170A

PATIENT
  Age: 52 Year
  Sex: Female

DRUGS (9)
  1. LAMICTAL [Suspect]
     Indication: BIPOLAR DISORDER
     Dosage: 150MG PER DAY
     Route: 048
  2. LISINOPRIL [Concomitant]
  3. METOPROLOL [Concomitant]
  4. THYROID DESSICATED [Concomitant]
  5. UNKNOWN MEDICATION [Concomitant]
  6. SIMVASTATIN [Concomitant]
  7. METFORMIN [Concomitant]
  8. MULTI-VITAMIN [Concomitant]
  9. TRAVATAN [Concomitant]
     Route: 047

REACTIONS (1)
  - Rash pruritic [Recovering/Resolving]
